FAERS Safety Report 23143611 (Version 1)
Quarter: 2023Q4

REPORT INFORMATION
  Report Type: Spontaneous
  Country: US (occurrence: None)
  Receive Date: 20231102
  Receipt Date: 20231102
  Transmission Date: 20240109
  Serious: No
  Sender: FDA-Public Use
  Company Number: None

PATIENT
  Sex: Female

DRUGS (1)
  1. XELJANZ [Suspect]
     Active Substance: TOFACITINIB CITRATE
     Indication: Ankylosing spondylitis
     Dosage: FREQUENCY : TWICE A DAY;?
     Route: 048
     Dates: start: 202306

REACTIONS (5)
  - Influenza [None]
  - Intentional dose omission [None]
  - Drug ineffective [None]
  - Musculoskeletal stiffness [None]
  - Arthritis [None]
